FAERS Safety Report 8905631 (Version 2)
Quarter: 2013Q1

REPORT INFORMATION
  Report Type: Spontaneous
  Country: US (occurrence: US)
  Receive Date: 20121111
  Receipt Date: 20130201
  Transmission Date: 20140127
  Serious: Yes (Hospitalization, Disabling)
  Sender: FDA-Public Use
  Company Number: PHEH2012US021985

PATIENT
  Sex: Female

DRUGS (1)
  1. RECLAST [Suspect]
     Dosage: UNK UKN, UNK
     Route: 042

REACTIONS (5)
  - Escherichia urinary tract infection [Unknown]
  - Chills [Unknown]
  - Renal failure acute [Unknown]
  - Renal injury [Unknown]
  - Atrial fibrillation [Unknown]
